FAERS Safety Report 7453692-7 (Version None)
Quarter: 2011Q2

REPORT INFORMATION
  Report Type: 
  Country: None (occurrence: None)
  Receive Date: 20110502
  Receipt Date: 20110110
  Transmission Date: 20111010
  Serious: No
  Sender: FDA-Public Use
  Company Number: US-ASTRAZENECA-2011SE01531

PATIENT
  Age: 8790 Day
  Sex: Male
  Weight: 79.4 kg

DRUGS (2)
  1. PREVACID OTC [Concomitant]
  2. NEXIUM [Suspect]
     Route: 048

REACTIONS (2)
  - HAEMATOCHEZIA [None]
  - DRUG DOSE OMISSION [None]
